FAERS Safety Report 20920925 (Version 1)
Quarter: 2022Q2

REPORT INFORMATION
  Report Type: Spontaneous
  Country: CA (occurrence: CA)
  Receive Date: 20220606
  Receipt Date: 20220606
  Transmission Date: 20220720
  Serious: Yes (Other)
  Sender: FDA-Public Use
  Company Number: CA-PFIZER INC-202200797677

PATIENT
  Age: 49 Year
  Sex: Female

DRUGS (2)
  1. EPINEPHRINE [Suspect]
     Active Substance: EPINEPHRINE
     Indication: Anaphylactic reaction
     Dosage: UNK
     Route: 065
  2. INFLUENZA VIRUS VACCINE [Suspect]
     Active Substance: INFLUENZA VIRUS VACCINE
     Indication: Prophylaxis
     Dosage: UNK
     Route: 030

REACTIONS (6)
  - Maternal exposure during pregnancy [Unknown]
  - Anaphylactic reaction [Unknown]
  - Erythema [Unknown]
  - Pruritus [Unknown]
  - Throat tightness [Unknown]
  - Urticaria [Unknown]
